FAERS Safety Report 16248844 (Version 1)
Quarter: 2019Q2

REPORT INFORMATION
  Report Type: Spontaneous
  Country: NL (occurrence: NL)
  Receive Date: 20190429
  Receipt Date: 20190429
  Transmission Date: 20190711
  Serious: Yes (Other)
  Sender: FDA-Public Use
  Company Number: NL-AUROBINDO-AUR-APL-2019-023601

PATIENT

DRUGS (4)
  1. CLOZAPINE 200 MG TABLETS [Suspect]
     Active Substance: CLOZAPINE
     Indication: PSYCHOTIC DISORDER
     Dosage: 58 DOSAGE FORM, DAILY (58 PIECES (AUTOINTOXICATION) DAILY DOSE 1DD2)
     Route: 048
     Dates: start: 20190218, end: 20190218
  2. VITA D [Concomitant]
     Indication: PRODUCT USED FOR UNKNOWN INDICATION
     Dosage: 100 DOSAGE FORM, DAILY (100 PIECES)
     Route: 065
  3. PARACETAMOL [Concomitant]
     Active Substance: ACETAMINOPHEN
     Indication: PRODUCT USED FOR UNKNOWN INDICATION
     Dosage: 38 DOSAGE FORM, DAILY (38 PIECES)
     Route: 065
  4. VALERIAAN [Concomitant]
     Active Substance: VALERIAN
     Indication: PRODUCT USED FOR UNKNOWN INDICATION
     Dosage: 5 DOSAGE FORM, DAILY (5-7 PIECES)
     Route: 065

REACTIONS (2)
  - Poisoning [Recovered/Resolved]
  - Insulin resistance [Recovered/Resolved]

NARRATIVE: CASE EVENT DATE: 20190218
